FAERS Safety Report 20047649 (Version 1)
Quarter: 2021Q4

REPORT INFORMATION
  Report Type: Spontaneous
  Country: US (occurrence: US)
  Receive Date: 20211109
  Receipt Date: 20211109
  Transmission Date: 20220303
  Serious: Yes (Other)
  Sender: FDA-Public Use
  Company Number: US-SA-SAC20211108001276

PATIENT
  Age: 35 Year
  Sex: Female

DRUGS (2)
  1. DUPIXENT [Suspect]
     Active Substance: DUPILUMAB
     Indication: Asthma
     Dosage: 200 MG, QOW
     Route: 058
     Dates: start: 2020
  2. XOLAIR [Concomitant]
     Active Substance: OMALIZUMAB
     Indication: Asthma
     Dates: start: 20211002

REACTIONS (2)
  - Asthma [Recovered/Resolved]
  - Dyspnoea [Recovered/Resolved]

NARRATIVE: CASE EVENT DATE: 20211001
